FAERS Safety Report 19799395 (Version 2)
Quarter: 2021Q3

REPORT INFORMATION
  Report Type: Spontaneous
  Country: US (occurrence: US)
  Receive Date: 20210907
  Receipt Date: 20210917
  Transmission Date: 20211014
  Serious: Yes (Other)
  Sender: FDA-Public Use
  Company Number: US-BAYER-2021-204613

PATIENT
  Sex: Male

DRUGS (1)
  1. ASP MAXIMUM STRENGTH COLD + COUGH POWERMAX GELS (ACETAMINOPHEN\CHLORPHENIRAMINE MALEATE\DEXTROMETHORPHAN HYDROBROMIDE\PHENYLEPHRINE HYDROCHLORIDE) [Suspect]
     Active Substance: ACETAMINOPHEN\CHLORPHENIRAMINE\DEXTROMETHORPHAN\PHENYLEPHRINE
     Dosage: 1 DF
     Route: 048

REACTIONS (2)
  - Foreign body in throat [None]
  - Product physical consistency issue [None]
